FAERS Safety Report 6803285-7 (Version None)
Quarter: 2010Q2

REPORT INFORMATION
  Report Type: 
  Country: None (occurrence: None)
  Receive Date: 20100628
  Receipt Date: 20100617
  Transmission Date: 20101027
  Serious: Yes (Other)
  Sender: FDA-Public Use
  Company Number: JP-WYE-H15787810

PATIENT
  Sex: Male
  Weight: 11 kg

DRUGS (5)
  1. ZOSYN [Suspect]
     Indication: SKIN INFECTION
     Dosage: 1 GRAM BOLUS DOSE
     Route: 040
     Dates: start: 20100517, end: 20100517
  2. ZOSYN [Suspect]
     Route: 042
     Dates: start: 20100518, end: 20100520
  3. ZOSYN [Suspect]
     Dosage: 3 GRAMS DAILY
     Route: 042
     Dates: start: 20100522, end: 20100523
  4. SOLITA-T1 [Concomitant]
     Indication: THERMAL BURN
     Route: 041
     Dates: start: 20100517, end: 20100518
  5. PETROLATUM [Concomitant]
     Indication: THERMAL BURN
     Dosage: UNKNOWN
     Route: 061
     Dates: start: 20100517

REACTIONS (5)
  - FLUSHING [None]
  - RESPIRATORY TRACT INFECTION [None]
  - SWELLING FACE [None]
  - URTICARIA [None]
  - WHEEZING [None]
